FAERS Safety Report 18476227 (Version 4)
Quarter: 2021Q2

REPORT INFORMATION
  Report Type: Spontaneous
  Country: US (occurrence: US)
  Receive Date: 20201106
  Receipt Date: 20210601
  Transmission Date: 20210717
  Serious: No
  Sender: FDA-Public Use
  Company Number: US-PFIZER INC-2020429281

PATIENT
  Age: 78 Year
  Sex: Female

DRUGS (8)
  1. VITAMIN D3 [Concomitant]
     Active Substance: CHOLECALCIFEROL
     Dosage: 2 DF, 1X/DAY (2 TABLETS A DAY)
  2. ELIQUIS [Concomitant]
     Active Substance: APIXABAN
     Indication: COAGULOPATHY
     Dosage: [2.5MG ONCE IN MORNING AND ONCE EVENING   ]
  3. KLOR?CON [Concomitant]
     Active Substance: POTASSIUM CHLORIDE
     Indication: BLOOD POTASSIUM
     Dosage: UNK, 2X/DAY (M20 TABLETS TWICE A DAY)
  4. LEVOTHYROXINE. [Concomitant]
     Active Substance: LEVOTHYROXINE
     Dosage: 88 UG, 1X/DAY
  5. IBRANCE [Suspect]
     Active Substance: PALBOCICLIB
     Indication: BREAST CANCER
     Dosage: 125 MG
  6. IBRANCE [Suspect]
     Active Substance: PALBOCICLIB
     Dosage: 120 MG
     Dates: start: 20200916
  7. IBRANCE [Suspect]
     Active Substance: PALBOCICLIB
     Dosage: 100 MG, CYCLIC (ONE A DAY; TAKES FOR 3 WEEKS AND NONE FOR THE 4TH WEEK)
  8. LETROZOLE. [Concomitant]
     Active Substance: LETROZOLE
     Dosage: 1 DF, 1X/DAY (ONE TABLET EVERY DAY)

REACTIONS (5)
  - Abdominal discomfort [Recovered/Resolved]
  - Product use complaint [Unknown]
  - Systemic leakage [Unknown]
  - Burning sensation [Unknown]
  - Platelet count decreased [Unknown]

NARRATIVE: CASE EVENT DATE: 20210301
